FAERS Safety Report 16805411 (Version 1)
Quarter: 2019Q3

REPORT INFORMATION
  Report Type: Spontaneous
  Country: US (occurrence: US)
  Receive Date: 20190913
  Receipt Date: 20190913
  Transmission Date: 20191005
  Serious: No
  Sender: FDA-Public Use
  Company Number: US-TEVA-2019-US-1106274

PATIENT
  Sex: Male

DRUGS (2)
  1. BUPRENORPHINE PATCHES [Suspect]
     Active Substance: BUPRENORPHINE
     Indication: PAIN IN EXTREMITY
  2. BUPRENORPHINE PATCHES [Suspect]
     Active Substance: BUPRENORPHINE
     Indication: BACK PAIN
     Dosage: DOSE STRENGTH: 20 MCG /HR
     Route: 062
     Dates: start: 2019

REACTIONS (1)
  - Drug ineffective [Unknown]

NARRATIVE: CASE EVENT DATE: 2019
